FAERS Safety Report 10420173 (Version 1)
Quarter: 2014Q3

REPORT INFORMATION
  Report Type: Report from Study
  Country: US (occurrence: None)
  Receive Date: 20140804
  Receipt Date: 20140804
  Transmission Date: 20150326
  Serious: Yes (Disabling)
  Sender: FDA-Public Use
  Company Number: 2013US008718

PATIENT
  Age: 60 Year
  Sex: Female
  Weight: 88.4 kg

DRUGS (24)
  1. TRAGENTA(TRAGENTA) [Concomitant]
  2. SPIRIVA [Concomitant]
     Active Substance: TIOTROPIUM BROMIDE MONOHYDRATE
  3. HUMALOG(INSULIN LISPRO) [Concomitant]
  4. DIPHENOXYLATE-ATROPINE(DIPHENOXYLATE-ATROPINE) [Concomitant]
  5. VITAMIN E [Concomitant]
     Active Substance: .ALPHA.-TOCOPHEROL
  6. LASIX [Concomitant]
     Active Substance: FUROSEMIDE
  7. COUMADIN [Concomitant]
     Active Substance: WARFARIN SODIUM
  8. POTASSIUM(POTASSIUM) [Concomitant]
  9. OMEGA II(DOCOSAHEXANOIC ACID, EICOSAPENTAENOIC ACID, TOCOPHERYL ACETATE) [Concomitant]
  10. OXYGEN (OYXGEN) [Concomitant]
  11. PROTONIX(PANTOPRAZOLE SODIUM SESQUIHYDRATE) [Concomitant]
  12. EPI E-Z PEN JR (EPI E-Z PEN JR) [Concomitant]
  13. ARALAST(ALPHA-1-ANTITRYPSIN) [Concomitant]
  14. COZAAR(LOSARTAN POTASSIUM) [Concomitant]
  15. ADVAIR DISKUS 250(ADVIAR DISKUS) [Concomitant]
  16. SAVISION(SAVISION) [Concomitant]
  17. LEVEMIR [Concomitant]
     Active Substance: INSULIN DETEMIR
  18. GLASSIA [Suspect]
     Active Substance: .ALPHA.1-PROTEINASE INHIBITOR HUMAN
     Indication: ALPHA-1 ANTI-TRYPSIN DEFICIENCY
     Dates: start: 20111020
  19. CALCET PLUS (ASCORBIC ACID, CALCIUM, CALCIUM PANTOTHENATE, CYANOCOBALMIN, ERGOCALCIFEROL, FOLIC ACID, IRON, NICOTINAMIDE, PYRIDOXINE HYDROCHLORIDE, RETINOL, RIBOVLAVIN, THIAMINE HYDROCHLORIDE, TOCOPHERYL ACID SUCCINATE, ZINC) [Concomitant]
  20. METFORMIN HCL (METFORMIN HYDROCHLORIDE) [Concomitant]
  21. REVATIO (SILDENAFIL CITRATE) [Concomitant]
  22. LOSARTAN(LOSARTAN) [Concomitant]
     Active Substance: LOSARTAN
  23. GABAPENTIN (GABAPENTIN) [Concomitant]
     Active Substance: GABAPENTIN
  24. METOPROLOL TARTATE (METOPROLOL TARTRATE) [Concomitant]

REACTIONS (8)
  - Feeling abnormal [None]
  - Somnolence [None]
  - Gastrointestinal haemorrhage [None]
  - Dyspnoea [None]
  - Fatigue [None]
  - Asthenia [None]
  - Infusion related reaction [None]
  - Impaired driving ability [None]

NARRATIVE: CASE EVENT DATE: 2012
